FAERS Safety Report 13120758 (Version 1)
Quarter: 2017Q1

REPORT INFORMATION
  Report Type: Spontaneous
  Country: FR (occurrence: FR)
  Receive Date: 20170117
  Receipt Date: 20170117
  Transmission Date: 20170428
  Serious: Yes (Other)
  Sender: FDA-Public Use
  Company Number: FR-ROCHE-1880254

PATIENT
  Age: 29 Year
  Sex: Female

DRUGS (5)
  1. SMECTA [Concomitant]
     Active Substance: MONTMORILLONITE
  2. IMODIUM [Concomitant]
     Active Substance: LOPERAMIDE HYDROCHLORIDE
  3. CORTANCYL [Concomitant]
     Active Substance: PREDNISONE
     Indication: ARTHRALGIA
  4. ROACTEMRA [Suspect]
     Active Substance: TOCILIZUMAB
     Indication: RHEUMATOID ARTHRITIS
     Route: 058
     Dates: start: 201601, end: 20161221
  5. CARBOLEVURE [Concomitant]
     Active Substance: ACTIVATED CHARCOAL\YEAST

REACTIONS (4)
  - Abdominal pain [Recovering/Resolving]
  - Campylobacter colitis [Recovering/Resolving]
  - Rectal haemorrhage [Recovering/Resolving]
  - Diarrhoea [Recovering/Resolving]

NARRATIVE: CASE EVENT DATE: 20161221
